FAERS Safety Report 7411730-1 (Version None)
Quarter: 2011Q2

REPORT INFORMATION
  Report Type: 
  Country: None (occurrence: None)
  Receive Date: 20110413
  Receipt Date: 20101208
  Transmission Date: 20111010
  Serious: Yes (Other)
  Sender: FDA-Public Use
  Company Number: US-BRISTOL-MYERS SQUIBB COMPANY-15430762

PATIENT
  Age: 72 Year
  Sex: Male

DRUGS (8)
  1. BENADRYL [Concomitant]
     Indication: PREMEDICATION
  2. ERBITUX [Suspect]
     Indication: COLON CANCER
     Route: 042
     Dates: start: 20100713, end: 20100713
  3. NORVASC [Concomitant]
  4. PEPCID [Concomitant]
     Indication: PREMEDICATION
  5. LEUCOVORIN [Concomitant]
  6. ACETAMINOPHEN [Concomitant]
  7. FLUOROURACIL [Concomitant]
  8. ASCORBIC ACID [Concomitant]

REACTIONS (1)
  - INFUSION RELATED REACTION [None]
